FAERS Safety Report 18414112 (Version 4)
Quarter: 2020Q4

REPORT INFORMATION
  Report Type: Report from Study
  Country: IT (occurrence: IT)
  Receive Date: 20201022
  Receipt Date: 20201224
  Transmission Date: 20210114
  Serious: Yes (Death)
  Sender: FDA-Public Use
  Company Number: IT-ACCORD-205849

PATIENT
  Age: 76 Year
  Sex: Female

DRUGS (8)
  1. FOLINA [Concomitant]
     Dosage: STRENGTH: 5 MG
  2. DIBASE [Concomitant]
     Active Substance: CHOLECALCIFEROL
  3. OMEPRAZOLE. [Concomitant]
     Active Substance: OMEPRAZOLE
  4. METHOTREXATE. [Suspect]
     Active Substance: METHOTREXATE
     Indication: RHEUMATOID ARTHRITIS
  5. SERTRALINE [Concomitant]
     Active Substance: SERTRALINE HYDROCHLORIDE
  6. TARGIN [Concomitant]
     Active Substance: NALOXONE HYDROCHLORIDE\OXYCODONE HYDROCHLORIDE
  7. DELTACORTENE [Suspect]
     Active Substance: PREDNISONE
     Indication: RHEUMATOID ARTHRITIS
     Dosage: STRENGTH: 5 MG
  8. XARELTO [Concomitant]
     Active Substance: RIVAROXABAN

REACTIONS (5)
  - Respiratory failure [Fatal]
  - Confusional state [Fatal]
  - Dyspnoea [Fatal]
  - COVID-19 pneumonia [Fatal]
  - Pyrexia [Fatal]

NARRATIVE: CASE EVENT DATE: 20200324
